FAERS Safety Report 22250128 (Version 1)
Quarter: 2023Q2

REPORT INFORMATION
  Report Type: Spontaneous
  Country: US (occurrence: None)
  Receive Date: 20230422
  Receipt Date: 20230422
  Transmission Date: 20230722
  Serious: No
  Sender: FDA-Public Use
  Company Number: None

PATIENT
  Sex: Male

DRUGS (20)
  1. ABIRATERONE ACETATE [Suspect]
     Active Substance: ABIRATERONE ACETATE
     Indication: Prostate cancer
     Dosage: FREQUENCY : DAILY;?
     Route: 048
  2. PREDNISONE [Suspect]
     Active Substance: PREDNISONE
     Indication: Prostate cancer
     Dosage: FREQUENCY : TWICE A DAY;?
     Route: 048
  3. ACETAMINOPHEN [Concomitant]
     Active Substance: ACETAMINOPHEN
  4. ANUCORT-HC [Concomitant]
     Active Substance: HYDROCORTISONE ACETATE
  5. ASPIRIN [Concomitant]
     Active Substance: ASPIRIN
  6. BENADRYL ALLERGY [Concomitant]
     Active Substance: DIPHENHYDRAMINE HYDROCHLORIDE
  7. CALCIPOTRIENE [Concomitant]
     Active Substance: CALCIPOTRIENE
  8. CALCIUM CITRATE [Concomitant]
     Active Substance: CALCIUM CITRATE
  9. CLOBETASOL [Concomitant]
     Active Substance: CLOBETASOL
  10. CYANOCOBALAMIN [Concomitant]
     Active Substance: CYANOCOBALAMIN
  11. METOPROLOL [Concomitant]
     Active Substance: METOPROLOL
  12. VITAMINS [Concomitant]
     Active Substance: VITAMINS
  13. OSTEO-VIT3 [Concomitant]
  14. PENTOXIFYLLINE [Concomitant]
     Active Substance: PENTOXIFYLLINE
  15. PRILOCAINE [Concomitant]
     Active Substance: PRILOCAINE
  16. SYNTHROID [Concomitant]
     Active Substance: LEVOTHYROXINE SODIUM
  17. TAMSULOSIN [Concomitant]
     Active Substance: TAMSULOSIN
  18. VITAMIN D3 [Concomitant]
     Active Substance: CHOLECALCIFEROL
  19. ZOCOR [Concomitant]
     Active Substance: SIMVASTATIN
  20. ZOLIPIDEM [Concomitant]

REACTIONS (2)
  - Metastases to bone [None]
  - Therapy cessation [None]
